FAERS Safety Report 6465019-8 (Version None)
Quarter: 2009Q4

REPORT INFORMATION
  Report Type: 
  Country: None (occurrence: None)
  Receive Date: 20091123
  Receipt Date: 20091110
  Transmission Date: 20100525
  Serious: Yes (Other)
  Sender: FDA-Public Use
  Company Number: 2009-04765

PATIENT
  Age: 50 Year
  Sex: Male

DRUGS (5)
  1. VELCADE [Suspect]
     Indication: MULTIPLE MYELOMA
     Dosage: 3.5 MG; 1 MG
  2. ADRIAMYCIN PFS [Concomitant]
  3. PREDNISONE [Concomitant]
  4. DEXAMETHASONE TAB [Concomitant]
  5. REVLIMID [Concomitant]

REACTIONS (2)
  - CARDIAC FAILURE [None]
  - DRUG INEFFECTIVE [None]
